FAERS Safety Report 5048789-5 (Version None)
Quarter: 2006Q3

REPORT INFORMATION
  Report Type: 
  Country: None (occurrence: None)
  Receive Date: 20060705
  Receipt Date: 20060613
  Transmission Date: 20061208
  Serious: Yes (Hospitalization)
  Sender: FDA-Public Use
  Company Number: DE200606003173

PATIENT
  Age: 48 Year
  Sex: Male

DRUGS (7)
  1. ZYPREXA [Suspect]
     Indication: SCHIZOAFFECTIVE DISORDER
     Dosage: 10 MG, DAILY (1/D), ORAL; SEE IMAGE
     Route: 048
     Dates: end: 20060401
  2. ZYPREXA [Suspect]
     Indication: SCHIZOAFFECTIVE DISORDER
     Dosage: 10 MG, DAILY (1/D), ORAL; SEE IMAGE
     Route: 048
     Dates: start: 20060401, end: 20060511
  3. LITHIUM (LITHIUM) [Concomitant]
  4. LORAZEPAM [Concomitant]
  5. HALDOL [Concomitant]
  6. MELPERONE (MELPERONE) [Concomitant]
  7. AKINETON/AUS/(BIPERIDEN HYDROCHLORIDE) [Concomitant]

REACTIONS (3)
  - LEUKOPENIA [None]
  - PRESCRIBED OVERDOSE [None]
  - THROMBOCYTOPENIA [None]
